FAERS Safety Report 11051228 (Version 1)
Quarter: 2015Q2

REPORT INFORMATION
  Report Type: Spontaneous
  Country: US (occurrence: None)
  Receive Date: 20150420
  Receipt Date: 20150420
  Transmission Date: 20150821
  Serious: No
  Sender: FDA-Public Use
  Company Number: None

PATIENT
  Age: 26 Year
  Sex: Female
  Weight: 90.72 kg

DRUGS (3)
  1. ABILIFY [Concomitant]
     Active Substance: ARIPIPRAZOLE
  2. PRAZOSIN 1 MG MYLAN [Suspect]
     Active Substance: PRAZOSIN
     Indication: NIGHTMARE
     Dosage: 1 PILL AT BEDTIME TAKEN BY MOUTH
     Route: 048
     Dates: start: 20150410, end: 20150419
  3. PROZAC [Concomitant]
     Active Substance: FLUOXETINE HYDROCHLORIDE

REACTIONS (4)
  - Dry mouth [None]
  - Anxiety [None]
  - Vision blurred [None]
  - Palpitations [None]

NARRATIVE: CASE EVENT DATE: 20150418
